FAERS Safety Report 10182069 (Version 1)
Quarter: 2014Q2

REPORT INFORMATION
  Report Type: Spontaneous
  Country: ES (occurrence: ES)
  Receive Date: 20140520
  Receipt Date: 20140520
  Transmission Date: 20141212
  Serious: Yes (Life-Threatening, Hospitalization, Other)
  Sender: FDA-Public Use
  Company Number: ES-JNJFOC-20140508608

PATIENT
  Age: 50 Year
  Sex: Female

DRUGS (4)
  1. FRENADOL SABOR NARANJA [Suspect]
     Indication: PRODUCT USED FOR UNKNOWN INDICATION
     Route: 065
     Dates: start: 20140314, end: 20140317
  2. IBUPROFEN [Suspect]
     Indication: PRODUCT USED FOR UNKNOWN INDICATION
     Route: 065
     Dates: start: 20140314, end: 20140317
  3. PARACETAMOL [Suspect]
     Route: 065
  4. PARACETAMOL [Suspect]
     Indication: PRODUCT USED FOR UNKNOWN INDICATION
     Route: 065
     Dates: start: 20140314, end: 20140317

REACTIONS (2)
  - Agranulocytosis [Recovered/Resolved]
  - Toxic epidermal necrolysis [Recovering/Resolving]
